FAERS Safety Report 25823124 (Version 2)
Quarter: 2025Q4

REPORT INFORMATION
  Report Type: Spontaneous
  Country: PE (occurrence: PE)
  Receive Date: 20250919
  Receipt Date: 20251007
  Transmission Date: 20260119
  Serious: Yes (Death, Other)
  Sender: RANBAXY
  Company Number: PE-SUN PHARMACEUTICAL INDUSTRIES INC-2025R1-527497

PATIENT
  Age: 69 Year
  Sex: Male
  Weight: 102 kg

DRUGS (4)
  1. DOXORUBICIN [Suspect]
     Active Substance: DOXORUBICIN
     Indication: Solitary fibrous tumour
     Dosage: UNK (27 MG)
     Route: 065
     Dates: start: 202405
  2. DOXORUBICIN [Suspect]
     Active Substance: DOXORUBICIN
     Indication: Metastases to bone
  3. IFOSFAMIDE [Suspect]
     Active Substance: IFOSFAMIDE
     Indication: Solitary fibrous tumour
     Dosage: UNK (4100 MG)
     Route: 065
     Dates: start: 202405
  4. IFOSFAMIDE [Suspect]
     Active Substance: IFOSFAMIDE
     Indication: Metastases to bone

REACTIONS (2)
  - Condition aggravated [Fatal]
  - Cardiac disorder [Unknown]

NARRATIVE: CASE EVENT DATE: 20241001
